FAERS Safety Report 8484076-0 (Version None)
Quarter: 2012Q3

REPORT INFORMATION
  Report Type: 
  Country: None (occurrence: None)
  Receive Date: 20120703
  Receipt Date: 20120625
  Transmission Date: 20120928
  Serious: Yes (Hospitalization, Other)
  Sender: FDA-Public Use
  Company Number: US-ELI_LILLY_AND_COMPANY-US201206008836

PATIENT
  Sex: Male

DRUGS (2)
  1. LANTUS [Concomitant]
  2. HUMALOG [Suspect]
     Indication: DIABETES MELLITUS
     Dosage: 60 U, PRN
     Dates: start: 19920101

REACTIONS (6)
  - DRUG INEFFECTIVE [None]
  - WEIGHT DECREASED [None]
  - DYSPHONIA [None]
  - BLOOD GLUCOSE INCREASED [None]
  - LIP AND/OR ORAL CAVITY CANCER [None]
  - DYSPHAGIA [None]
